FAERS Safety Report 14403686 (Version 2)
Quarter: 2018Q1

REPORT INFORMATION
  Report Type: Other
  Country: US (occurrence: US)
  Receive Date: 20180117
  Receipt Date: 20180130
  Transmission Date: 20180509
  Serious: Yes (Hospitalization, Other)
  Sender: FDA-Public Use
  Company Number: US-UNITED THERAPEUTICS-UNT-2018-000522

PATIENT
  Age: 14 Year
  Sex: Female
  Weight: 45.35 kg

DRUGS (3)
  1. SILDENAFIL CITRATE. [Concomitant]
     Active Substance: SILDENAFIL CITRATE
     Indication: PRODUCT USED FOR UNKNOWN INDICATION
     Dosage: UNK
     Route: 065
  2. LETAIRIS [Concomitant]
     Active Substance: AMBRISENTAN
     Indication: PRODUCT USED FOR UNKNOWN INDICATION
     Dosage: UNK
     Route: 065
  3. ORENITRAM [Suspect]
     Active Substance: TREPROSTINIL
     Indication: PULMONARY ARTERIAL HYPERTENSION
     Dosage: 0.25 MG IN A.M., 0.5 MG IN P.M.
     Route: 048
     Dates: start: 20171019

REACTIONS (3)
  - Gastroenteritis norovirus [Recovered/Resolved]
  - Oxygen consumption increased [Unknown]
  - Malaise [Unknown]

NARRATIVE: CASE EVENT DATE: 201801
